FAERS Safety Report 5535690-3 (Version None)
Quarter: 2007Q4

REPORT INFORMATION
  Report Type: 
  Country: None (occurrence: None)
  Receive Date: 20071206
  Receipt Date: 20070314
  Transmission Date: 20080405
  Serious: Yes (Other)
  Sender: FDA-Public Use
  Company Number: US-AMGEN-KDL209526

PATIENT
  Sex: Female
  Weight: 74.9 kg

DRUGS (3)
  1. ENBREL [Suspect]
     Indication: PSORIATIC ARTHROPATHY
     Route: 058
     Dates: start: 20060715, end: 20061230
  2. METHOTREXATE [Concomitant]
     Dates: start: 20060601, end: 20061201
  3. ADALIMUMAB [Concomitant]
     Dates: start: 20060323

REACTIONS (2)
  - B-CELL LYMPHOMA STAGE II [None]
  - COUGH [None]
